FAERS Safety Report 4335420-7 (Version None)
Quarter: 2004Q2

REPORT INFORMATION
  Report Type: 
  Country: None (occurrence: None)
  Receive Date: 20040408
  Receipt Date: 20040408
  Transmission Date: 20050107
  Serious: Yes (Hospitalization)
  Sender: FDA-Public Use
  Company Number: None

PATIENT
  Sex: Male
  Weight: 74 kg

DRUGS (1)
  1. LOPROX [Suspect]
     Indication: FUNGAL SKIN INFECTION
     Dosage: SUFF TWICE TOPICAL  DAIL AMOUNT
     Route: 061
     Dates: start: 20040401, end: 20040403

REACTIONS (3)
  - CELLULITIS [None]
  - RASH GENERALISED [None]
  - URTICARIA [None]
